FAERS Safety Report 13659255 (Version 1)
Quarter: 2017Q2

REPORT INFORMATION
  Report Type: Spontaneous
  Country: US (occurrence: US)
  Receive Date: 20170616
  Receipt Date: 20170616
  Transmission Date: 20170830
  Serious: Yes (Hospitalization)
  Sender: FDA-Public Use
  Company Number: None

PATIENT
  Age: 70 Year
  Sex: Female
  Weight: 134.5 kg

DRUGS (13)
  1. VITAMIN D [Concomitant]
     Active Substance: CHOLECALCIFEROL
  2. WARFARIN [Suspect]
     Active Substance: WARFARIN
     Indication: ATRIAL TACHYCARDIA
     Dosage: DATES OF USE - CHRONIC?FREQUENCY - TTHSS
     Route: 048
  3. WARFARIN [Suspect]
     Active Substance: WARFARIN
     Indication: ATRIAL TACHYCARDIA
     Dosage: DATES OF USE - CHRONIC?FREQUENCY - MWF
     Route: 048
  4. CARDIZEM CD [Concomitant]
     Active Substance: DILTIAZEM HYDROCHLORIDE
  5. ADVAIR DISKUS [Concomitant]
     Active Substance: FLUTICASONE PROPIONATE\SALMETEROL XINAFOATE
  6. BUMEX [Concomitant]
     Active Substance: BUMETANIDE
  7. WARFARIN [Suspect]
     Active Substance: WARFARIN
     Indication: SUPRAVENTRICULAR TACHYCARDIA
     Dosage: DATES OF USE - CHRONIC?FREQUENCY - TTHSS
     Route: 048
  8. ZYRTEC [Concomitant]
     Active Substance: CETIRIZINE HYDROCHLORIDE
  9. LAN [Concomitant]
  10. COREG [Concomitant]
     Active Substance: CARVEDILOL
  11. WARFARIN [Suspect]
     Active Substance: WARFARIN
     Indication: SUPRAVENTRICULAR TACHYCARDIA
     Dosage: DATES OF USE - CHRONIC?FREQUENCY - MWF
     Route: 048
  12. ALLOPURINOL. [Concomitant]
     Active Substance: ALLOPURINOL
  13. APRESOLINE HYDROCHLORIDE [Concomitant]
     Active Substance: HYDRALAZINE HYDROCHLORIDE

REACTIONS (5)
  - International normalised ratio increased [None]
  - Calciphylaxis [None]
  - Wound [None]
  - Haemorrhage [None]
  - Coagulopathy [None]

NARRATIVE: CASE EVENT DATE: 20170424
